FAERS Safety Report 9280463 (Version 1)
Quarter: 2013Q2

REPORT INFORMATION
  Report Type: Spontaneous
  Country: US (occurrence: US)
  Receive Date: 20130509
  Receipt Date: 20130509
  Transmission Date: 20140414
  Serious: Yes (Other)
  Sender: FDA-Public Use
  Company Number: US-BAYER-2013-054770

PATIENT
  Sex: Female

DRUGS (1)
  1. ALKA-SELTZER PLUS SPARKLING ORIGINAL COLD FORMULA [Suspect]
     Indication: PAIN
     Route: 048

REACTIONS (3)
  - Local swelling [None]
  - Wound [None]
  - Off label use [None]
